FAERS Safety Report 4652637-2 (Version None)
Quarter: 2005Q2

REPORT INFORMATION
  Report Type: 
  Country: None (occurrence: None)
  Receive Date: 20050408
  Receipt Date: 20041223
  Transmission Date: 20051028
  Serious: No
  Sender: FDA-Public Use
  Company Number: 236169K04USA

PATIENT
  Age: 26 Year
  Sex: Female

DRUGS (2)
  1. REBIF [Suspect]
     Indication: MULTIPLE SCLEROSIS
     Dosage: 44 MCG, 3 IN 1 WEEKS, SUBCUTANEOUS
     Route: 058
     Dates: start: 20030126
  2. IMURAN [Concomitant]

REACTIONS (4)
  - INFLUENZA LIKE ILLNESS [None]
  - OSTEOPOROSIS [None]
  - SKIN INDURATION [None]
  - WHITE BLOOD CELL COUNT DECREASED [None]
